FAERS Safety Report 11273062 (Version 1)
Quarter: 2015Q3

REPORT INFORMATION
  Report Type: Spontaneous
  Country: US (occurrence: None)
  Receive Date: 20150714
  Receipt Date: 20150714
  Transmission Date: 20151125
  Serious: Yes (Death)
  Sender: FDA-Public Use
  Company Number: None

PATIENT
  Age: 64 Year
  Sex: Male

DRUGS (2)
  1. NEUPOGEN [Suspect]
     Active Substance: FILGRASTIM
     Indication: PANCREATIC CARCINOMA
     Dosage: 480 MCG, BIW, SQ?
     Route: 058
     Dates: start: 20140218, end: 20150606
  2. ABRAXANE [Suspect]
     Active Substance: PACLITAXEL
     Indication: PANCREATIC CARCINOMA
     Dosage: 150 MG, DAILY, PO
     Route: 048
     Dates: start: 20150406, end: 20150606

REACTIONS (1)
  - Death [None]

NARRATIVE: CASE EVENT DATE: 20150606
